FAERS Safety Report 4379853-1 (Version None)
Quarter: 2004Q2

REPORT INFORMATION
  Report Type: 
  Country: None (occurrence: None)
  Receive Date: 20040617
  Receipt Date: 20040609
  Transmission Date: 20050107
  Serious: Yes (Life-Threatening)
  Sender: FDA-Public Use
  Company Number: GB-BRISTOL-MYERS SQUIBB COMPANY-12609475

PATIENT
  Age: 64 Year
  Sex: Female

DRUGS (5)
  1. CISPLATIN [Suspect]
     Indication: CERVIX CARCINOMA
     Dosage: 1ST DOSE ON 09FEB04
     Route: 042
     Dates: start: 20040216, end: 20040216
  2. PRAVASTATIN SODIUM [Concomitant]
  3. TILDIEM [Concomitant]
  4. RAMIPRIL [Concomitant]
  5. ASPIRIN [Concomitant]

REACTIONS (1)
  - ANGINA PECTORIS [None]
